FAERS Safety Report 15627239 (Version 1)
Quarter: 2018Q4

REPORT INFORMATION
  Report Type: Spontaneous
  Country: US (occurrence: US)
  Receive Date: 20181116
  Receipt Date: 20181116
  Transmission Date: 20190205
  Serious: No
  Sender: FDA-Public Use
  Company Number: US-MYLANLABS-2018M1086898

PATIENT
  Sex: Male
  Weight: 113 kg

DRUGS (1)
  1. ESZOPICLONE TABLETS [Suspect]
     Active Substance: ESZOPICLONE
     Indication: INSOMNIA
     Dosage: UNK
     Route: 048

REACTIONS (3)
  - Drug ineffective [Unknown]
  - Somnolence [Unknown]
  - Anxiety [Unknown]
